FAERS Safety Report 17396702 (Version 2)
Quarter: 2020Q2

REPORT INFORMATION
  Report Type: Spontaneous
  Country: US (occurrence: US)
  Receive Date: 20200210
  Receipt Date: 20200629
  Transmission Date: 20200713
  Serious: No
  Sender: FDA-Public Use
  Company Number: US-PFIZER INC-2019537880

PATIENT
  Age: 72 Year

DRUGS (1)
  1. CAVERJECT [Suspect]
     Active Substance: ALPROSTADIL
     Dosage: 40 UG, AS NEEDED (40 MCG INTO THE AREA UP TO 3 TIMES PER WEEK AS NEEDED)

REACTIONS (2)
  - Product prescribing error [Unknown]
  - Oropharyngeal pain [Unknown]
